FAERS Safety Report 15550830 (Version 1)
Quarter: 2018Q4

REPORT INFORMATION
  Report Type: Spontaneous
  Country: CO (occurrence: CO)
  Receive Date: 20181025
  Receipt Date: 20181025
  Transmission Date: 20190205
  Serious: Yes (Life-Threatening, Hospitalization, Other)
  Sender: FDA-Public Use
  Company Number: CO-BAYER-2018-193923

PATIENT
  Age: 21 Year
  Sex: Male
  Weight: 72 kg

DRUGS (1)
  1. ASPIRIN ULTRA 500 MG [Suspect]
     Active Substance: ASPIRIN
     Indication: SUICIDE ATTEMPT
     Dosage: 25 DF, ONCE
     Route: 048
     Dates: start: 20180622

REACTIONS (4)
  - Suicide attempt [None]
  - Haematochezia [None]
  - Hypoacusis [None]
  - Intentional overdose [None]

NARRATIVE: CASE EVENT DATE: 20180622
